FAERS Safety Report 15660229 (Version 1)
Quarter: 2018Q4

REPORT INFORMATION
  Report Type: Report from Study
  Country: US (occurrence: US)
  Receive Date: 20181127
  Receipt Date: 20181127
  Transmission Date: 20190205
  Serious: Yes (Life-Threatening, Hospitalization)
  Sender: FDA-Public Use
  Company Number: US-TEVA-2018-US-980550

PATIENT
  Age: 67 Year
  Sex: Female

DRUGS (1)
  1. OXYCODONE [Suspect]
     Active Substance: OXYCODONE
     Indication: DRUG ABUSE
     Route: 048

REACTIONS (4)
  - Hypotension [Unknown]
  - Drug abuse [Unknown]
  - Toxicity to various agents [Unknown]
  - Respiratory arrest [Unknown]

NARRATIVE: CASE EVENT DATE: 2015
